FAERS Safety Report 7588147-2 (Version None)
Quarter: 2011Q3

REPORT INFORMATION
  Report Type: 
  Country: None (occurrence: None)
  Receive Date: 20110705
  Receipt Date: 20110606
  Transmission Date: 20111222
  Serious: Yes (Hospitalization, Other)
  Sender: FDA-Public Use
  Company Number: US-BAYER-201024962NA

PATIENT
  Age: 30 Year
  Sex: Female
  Weight: 54.422 kg

DRUGS (15)
  1. FLAGYL [Concomitant]
  2. PROTONIX [Concomitant]
  3. COLACE [Concomitant]
  4. YASMIN [Suspect]
     Indication: PRODUCT USED FOR UNKNOWN INDICATION
     Dosage: UNK
     Route: 048
     Dates: start: 20080101, end: 20080601
  5. PEPTO [Concomitant]
     Indication: ABDOMINAL PAIN
  6. LEVAQUIN [Concomitant]
  7. ACETAMINOPHEN AND HYDROCODONE BITARTRATE [Concomitant]
  8. PEPCID [Concomitant]
     Indication: ABDOMINAL PAIN
  9. XANAX [Concomitant]
  10. IMITREX [Concomitant]
  11. ZOLPIDEM TARTRATE [Concomitant]
  12. PERCOCET [Concomitant]
  13. ANAESTHETICS [Concomitant]
     Dosage: UNK
     Dates: start: 20080621, end: 20080621
  14. ALPRAZOLAM [Concomitant]
  15. NEXIUM [Concomitant]

REACTIONS (3)
  - PAIN [None]
  - GALLBLADDER DISORDER [None]
  - CHOLECYSTITIS CHRONIC [None]
